FAERS Safety Report 19415907 (Version 1)
Quarter: 2021Q2

REPORT INFORMATION
  Report Type: Spontaneous
  Country: US (occurrence: US)
  Receive Date: 20210615
  Receipt Date: 20210615
  Transmission Date: 20210717
  Serious: No
  Sender: FDA-Public Use
  Company Number: US-JNJFOC-20210619316

PATIENT
  Sex: Female

DRUGS (1)
  1. IMODIUM MULTI?SYMPTOM RELIEF [Suspect]
     Active Substance: DIMETHICONE\LOPERAMIDE HYDROCHLORIDE
     Indication: MUSCLE SPASMS
     Dosage: 1 ONLY. ONCE A DAY.
     Route: 065
     Dates: start: 2021

REACTIONS (5)
  - Off label use [Unknown]
  - Cardiac disorder [Unknown]
  - Product use in unapproved indication [Unknown]
  - Tremor [Unknown]
  - Product label issue [Unknown]

NARRATIVE: CASE EVENT DATE: 2021
